FAERS Safety Report 17796603 (Version 1)
Quarter: 2020Q2

REPORT INFORMATION
  Report Type: Spontaneous
  Country: US (occurrence: US)
  Receive Date: 20200518
  Receipt Date: 20200518
  Transmission Date: 20200714
  Serious: Yes (Life-Threatening, Hospitalization, Other)
  Sender: FDA-Public Use
  Company Number: US-GLENMARK PHARMACEUTICALS-2020GMK047760

PATIENT
  Age: 44 Year
  Sex: Female

DRUGS (4)
  1. VERAPAMIL [Suspect]
     Active Substance: VERAPAMIL HYDROCHLORIDE
     Indication: MIGRAINE PROPHYLAXIS
     Dosage: 60 DOSAGE FORM (60 TABLETS)
     Route: 065
  2. CLONAZEPAM. [Suspect]
     Active Substance: CLONAZEPAM
     Indication: RESTLESS LEGS SYNDROME
     Dosage: 90 DOSAGE FORM (90 TABLETS)
     Route: 065
  3. CLONAZEPAM. [Suspect]
     Active Substance: CLONAZEPAM
     Indication: SUICIDE ATTEMPT
  4. VERAPAMIL [Suspect]
     Active Substance: VERAPAMIL HYDROCHLORIDE
     Indication: SUICIDE ATTEMPT

REACTIONS (13)
  - Dysarthria [Recovering/Resolving]
  - Hyperglycaemia [Recovering/Resolving]
  - Toxicity to various agents [Recovering/Resolving]
  - Aspartate aminotransferase increased [Recovering/Resolving]
  - Bradycardia [Recovering/Resolving]
  - Suicide attempt [Unknown]
  - Mental status changes [Recovering/Resolving]
  - Hypotension [Recovering/Resolving]
  - Acute respiratory distress syndrome [Recovering/Resolving]
  - Glomerular filtration rate decreased [Recovering/Resolving]
  - Electrocardiogram QRS complex prolonged [Recovering/Resolving]
  - Intentional overdose [Recovering/Resolving]
  - Atrioventricular dissociation [Recovering/Resolving]
